FAERS Safety Report 7033280-7 (Version None)
Quarter: 2010Q4

REPORT INFORMATION
  Report Type: 
  Country: None (occurrence: None)
  Receive Date: 20101007
  Receipt Date: 20101005
  Transmission Date: 20110411
  Serious: Yes (Other)
  Sender: FDA-Public Use
  Company Number: A0885007A

PATIENT
  Age: 38 Year
  Sex: Female

DRUGS (2)
  1. ADVAIR DISKUS 100/50 [Suspect]
     Indication: ASTHMA
     Dosage: 1PUFF TWICE PER DAY
     Route: 055
     Dates: start: 20060101
  2. LEVOTHYROXINE [Concomitant]

REACTIONS (6)
  - DRUG DEPENDENCE [None]
  - DRY MOUTH [None]
  - DYSPHONIA [None]
  - MYALGIA [None]
  - PHARYNGEAL DISORDER [None]
  - VISUAL ACUITY REDUCED [None]
